FAERS Safety Report 18484579 (Version 22)
Quarter: 2023Q4

REPORT INFORMATION
  Report Type: Report from Study
  Country: DE (occurrence: DE)
  Receive Date: 20201110
  Receipt Date: 20231107
  Transmission Date: 20240110
  Serious: Yes (Hospitalization, Other)
  Sender: FDA-Public Use
  Company Number: PHHY2019DE182202

PATIENT
  Age: 68 Year
  Sex: Female
  Weight: 74.4 kg

DRUGS (31)
  1. COSENTYX [Suspect]
     Active Substance: SECUKINUMAB
     Indication: Psoriatic arthropathy
     Dosage: 300 MG, QMO
     Route: 065
     Dates: start: 20171024, end: 20171120
  2. COSENTYX [Suspect]
     Active Substance: SECUKINUMAB
     Dosage: 300 MG, UNKNOWN
     Route: 065
     Dates: start: 20171121
  3. COSENTYX [Suspect]
     Active Substance: SECUKINUMAB
     Dosage: 300 MG, UNKNOWN
     Route: 065
  4. COSENTYX [Suspect]
     Active Substance: SECUKINUMAB
     Dosage: 300 MG, UNKNOWN
     Route: 065
  5. COSENTYX [Suspect]
     Active Substance: SECUKINUMAB
     Dosage: 300 MG, UNKNOWN
     Route: 058
  6. COSENTYX [Suspect]
     Active Substance: SECUKINUMAB
     Dosage: 300 MG, QMO
     Route: 058
  7. COSENTYX [Suspect]
     Active Substance: SECUKINUMAB
     Dosage: 300 MG, QMO
     Route: 058
  8. COSENTYX [Suspect]
     Active Substance: SECUKINUMAB
     Dosage: 300 MG
     Route: 065
     Dates: start: 20171024, end: 20171120
  9. COSENTYX [Suspect]
     Active Substance: SECUKINUMAB
     Dosage: 300 MG
     Route: 065
     Dates: start: 20171121
  10. COSENTYX [Suspect]
     Active Substance: SECUKINUMAB
     Dosage: 300 MG
     Route: 065
     Dates: start: 20171024, end: 20171120
  11. COSENTYX [Suspect]
     Active Substance: SECUKINUMAB
     Dosage: 300 MG
     Route: 065
     Dates: start: 20171121
  12. COSENTYX [Suspect]
     Active Substance: SECUKINUMAB
     Dosage: 300 MG
     Route: 065
     Dates: start: 20171024, end: 20171120
  13. COSENTYX [Suspect]
     Active Substance: SECUKINUMAB
     Dosage: 300 MG
     Route: 065
     Dates: start: 20171121
  14. COSENTYX [Suspect]
     Active Substance: SECUKINUMAB
     Dosage: UNK
     Route: 065
  15. COSENTYX [Suspect]
     Active Substance: SECUKINUMAB
     Dosage: 300 MG
     Route: 065
     Dates: start: 20171024, end: 20171120
  16. COSENTYX [Suspect]
     Active Substance: SECUKINUMAB
     Dosage: 300 MG
     Route: 065
     Dates: start: 20171121
  17. COSENTYX [Suspect]
     Active Substance: SECUKINUMAB
     Dosage: 300 MG
     Route: 065
     Dates: start: 20171024, end: 20171120
  18. COSENTYX [Suspect]
     Active Substance: SECUKINUMAB
     Dosage: 300 MG
     Route: 065
     Dates: start: 20171121
  19. COSENTYX [Suspect]
     Active Substance: SECUKINUMAB
     Dosage: UNK
     Route: 065
  20. LEVOTHYROXINE SODIUM [Concomitant]
     Active Substance: LEVOTHYROXINE SODIUM
     Indication: Hypothyroidism
     Dosage: UNK, QD
     Route: 065
     Dates: start: 1993, end: 20190708
  21. LEVOTHYROXINE SODIUM [Concomitant]
     Active Substance: LEVOTHYROXINE SODIUM
     Dosage: 7.5 UG, QD
     Route: 065
     Dates: start: 20190709
  22. CANDESARTAN CILEXETIL [Concomitant]
     Active Substance: CANDESARTAN CILEXETIL
     Indication: Hypertension
     Dosage: 16 MG, QD
     Route: 065
     Dates: start: 20190115
  23. METHOTREXATE [Concomitant]
     Active Substance: METHOTREXATE
     Indication: Product used for unknown indication
     Dosage: UNK
     Route: 065
     Dates: start: 201011
  24. METHOTREXATE [Concomitant]
     Active Substance: METHOTREXATE
     Dosage: 20 MG
     Route: 058
     Dates: start: 201602
  25. METHOTREXATE [Concomitant]
     Active Substance: METHOTREXATE
     Dosage: 25 MG
     Route: 058
     Dates: start: 201705
  26. METHOTREXATE [Concomitant]
     Active Substance: METHOTREXATE
     Dosage: UNK (10, UNSPECIFIED UNITS)
     Route: 058
  27. METHOTREXATE [Concomitant]
     Active Substance: METHOTREXATE
     Dosage: 10 MG, QW
     Route: 065
     Dates: start: 20211128
  28. CIMZIA [Concomitant]
     Active Substance: CERTOLIZUMAB PEGOL
     Indication: Product used for unknown indication
     Dosage: UNK
     Route: 065
     Dates: start: 201503
  29. CIMZIA [Concomitant]
     Active Substance: CERTOLIZUMAB PEGOL
     Dosage: UNK (INTERVAL SHORTENING 12 DAYS)
     Route: 065
     Dates: start: 201609
  30. CIMZIA [Concomitant]
     Active Substance: CERTOLIZUMAB PEGOL
     Dosage: UNK (TO 10 DAYS)
     Route: 065
     Dates: start: 201705
  31. AMLODIPINE [Concomitant]
     Active Substance: AMLODIPINE BESYLATE
     Indication: Hypertension
     Dosage: UNK, PRN
     Route: 065

REACTIONS (46)
  - Pneumonia [Recovered/Resolved]
  - Tooth abscess [Recovered/Resolved with Sequelae]
  - Interstitial lung abnormality [Not Recovered/Not Resolved]
  - Dyspnoea exertional [Recovering/Resolving]
  - Pneumonia [Unknown]
  - Polyneuropathy [Unknown]
  - Osteochondrosis [Unknown]
  - Lipoedema [Unknown]
  - Tricuspid valve incompetence [Unknown]
  - Hyperthyroidism [Recovered/Resolved]
  - Gastrointestinal oedema [Recovered/Resolved]
  - Psoriatic arthropathy [Recovered/Resolved with Sequelae]
  - Pleurisy [Recovered/Resolved]
  - Viral infection [Recovered/Resolved]
  - Ear pain [Recovered/Resolved]
  - Subcutaneous abscess [Recovered/Resolved]
  - Urinary tract infection [Recovered/Resolved]
  - Fibromyalgia [Unknown]
  - Spondylolisthesis [Unknown]
  - Intervertebral disc protrusion [Unknown]
  - Spondylitis [Unknown]
  - Varicose vein [Unknown]
  - Peripheral venous disease [Unknown]
  - Osteoporosis [Unknown]
  - Diastolic dysfunction [Unknown]
  - Blood creatinine increased [Unknown]
  - Atrial natriuretic peptide increased [Unknown]
  - Blood cholinesterase increased [Unknown]
  - Weight increased [Unknown]
  - Cardiomegaly [Unknown]
  - Cholelithiasis [Not Recovered/Not Resolved]
  - Abdominal pain [Recovered/Resolved]
  - Dry eye [Recovering/Resolving]
  - Vomiting [Not Recovered/Not Resolved]
  - Abdominal pain [Not Recovered/Not Resolved]
  - Hypertension [Recovered/Resolved]
  - Diverticulum [Not Recovered/Not Resolved]
  - Colorectal adenoma [Recovered/Resolved]
  - Nail psoriasis [Recovered/Resolved]
  - Pyrexia [Recovering/Resolving]
  - Vitamin D deficiency [Recovering/Resolving]
  - Muscle spasms [Not Recovered/Not Resolved]
  - Hypertension [Recovering/Resolving]
  - Pleurisy [Unknown]
  - Periodontitis [Recovered/Resolved]
  - Bronchial hyperreactivity [Recovering/Resolving]

NARRATIVE: CASE EVENT DATE: 20181201
